FAERS Safety Report 8643680 (Version 4)
Quarter: 2013Q2

REPORT INFORMATION
  Report Type: Report from Study
  Country: CA (occurrence: CA)
  Receive Date: 20120629
  Receipt Date: 20130620
  Transmission Date: 20140414
  Serious: Yes (Hospitalization, Other)
  Sender: FDA-Public Use
  Company Number: CA-ROCHE-1082591

PATIENT
  Age: 60 Year
  Sex: Female
  Weight: 69 kg

DRUGS (9)
  1. ACTEMRA [Suspect]
     Indication: RHEUMATOID ARTHRITIS
     Route: 042
     Dates: start: 20110414
  2. ASPIRIN [Concomitant]
  3. EFFEXOR [Concomitant]
  4. WELLBUTRIN [Concomitant]
  5. TRAZODONE [Concomitant]
  6. GABAPENTIN [Concomitant]
  7. TOPAMAX [Concomitant]
  8. ARTHROTEC [Concomitant]
  9. TYLENOL #3 (CANADA) [Concomitant]
     Dosage: AS NEEDED
     Route: 065

REACTIONS (3)
  - Pancreatitis [Recovered/Resolved]
  - Hypotension [Recovered/Resolved]
  - Gastroenteritis viral [Not Recovered/Not Resolved]
